FAERS Safety Report 24877036 (Version 1)
Quarter: 2025Q1

REPORT INFORMATION
  Report Type: Spontaneous
  Country: AU (occurrence: AU)
  Receive Date: 20250123
  Receipt Date: 20250123
  Transmission Date: 20250409
  Serious: Yes (Hospitalization)
  Sender: SANDOZ
  Company Number: AU-ELI_LILLY_AND_COMPANY-AU202410011056

PATIENT
  Age: 59 Year
  Sex: Female

DRUGS (24)
  1. FULVESTRANT [Suspect]
     Active Substance: FULVESTRANT
     Indication: Breast cancer
     Route: 042
     Dates: start: 20240305, end: 20240305
  2. FULVESTRANT [Suspect]
     Active Substance: FULVESTRANT
     Route: 042
     Dates: start: 20240319, end: 20240319
  3. FULVESTRANT [Suspect]
     Active Substance: FULVESTRANT
     Route: 042
     Dates: start: 20240411, end: 20240411
  4. FULVESTRANT [Suspect]
     Active Substance: FULVESTRANT
     Route: 042
     Dates: start: 20240501, end: 20240501
  5. FULVESTRANT [Suspect]
     Active Substance: FULVESTRANT
     Route: 042
     Dates: start: 20240529, end: 20240529
  6. FULVESTRANT [Suspect]
     Active Substance: FULVESTRANT
     Route: 042
     Dates: start: 20240626, end: 20240626
  7. FULVESTRANT [Suspect]
     Active Substance: FULVESTRANT
     Route: 042
     Dates: start: 20240724, end: 20240724
  8. FULVESTRANT [Suspect]
     Active Substance: FULVESTRANT
     Route: 042
     Dates: start: 20240821, end: 20240821
  9. FULVESTRANT [Suspect]
     Active Substance: FULVESTRANT
     Route: 042
     Dates: start: 20240918, end: 20240918
  10. FULVESTRANT [Suspect]
     Active Substance: FULVESTRANT
     Route: 042
     Dates: start: 20241022, end: 20241022
  11. ATORVASTATIN [Concomitant]
     Active Substance: ATORVASTATIN
     Indication: Hypercholesterolaemia
     Dosage: 20 MG, QD
     Route: 048
     Dates: start: 20240130
  12. BISOPROLOL [Concomitant]
     Active Substance: BISOPROLOL
     Indication: Ventricular arrhythmia
     Route: 065
  13. CANDESARTAN [Concomitant]
     Active Substance: CANDESARTAN
     Indication: Hypertension
     Route: 065
  14. DOCUSATE SODIUM [Concomitant]
     Active Substance: DOCUSATE SODIUM
     Indication: Constipation
     Route: 048
     Dates: start: 202401
  15. OXYCODONE HYDROCHLORIDE [Concomitant]
     Active Substance: OXYCODONE HYDROCHLORIDE
     Indication: Lymphoedema
     Route: 048
     Dates: start: 20240501
  16. FUROSEMIDE [Concomitant]
     Active Substance: FUROSEMIDE
     Indication: Lymphoedema
     Dosage: 80 MG, QD
     Route: 065
     Dates: start: 20240918, end: 20241021
  17. LOPERAMIDE [Concomitant]
     Active Substance: LOPERAMIDE
     Indication: Diarrhoea
     Route: 065
  18. LOPERAMIDE [Concomitant]
     Active Substance: LOPERAMIDE
     Indication: Diarrhoea
     Route: 065
  19. MAGNESIUM ASPARTATE DIHYDRATE [Concomitant]
     Active Substance: MAGNESIUM ASPARTATE DIHYDRATE
     Indication: Product used for unknown indication
     Route: 065
  20. METOCLOPRAMIDE [Concomitant]
     Active Substance: METOCLOPRAMIDE
     Indication: Nausea
     Dosage: 30 MG, QD
     Route: 048
     Dates: start: 202401
  21. ACETAMINOPHEN [Concomitant]
     Active Substance: ACETAMINOPHEN
     Indication: Breast pain
     Route: 048
     Dates: start: 20240213
  22. ACETAMINOPHEN [Concomitant]
     Active Substance: ACETAMINOPHEN
     Indication: Headache
  23. POTASSIUM CHLORIDE [Concomitant]
     Active Substance: POTASSIUM CHLORIDE
     Indication: Prophylaxis
     Route: 048
     Dates: start: 20240808, end: 20241011
  24. VITAMIN D [Concomitant]
     Active Substance: VITAMIN D NOS
     Indication: Product used for unknown indication
     Route: 065

REACTIONS (1)
  - Hypokalaemia [Recovered/Resolved]

NARRATIVE: CASE EVENT DATE: 20241016
